FAERS Safety Report 4890584-1 (Version None)
Quarter: 2006Q1

REPORT INFORMATION
  Report Type: 
  Country: None (occurrence: None)
  Receive Date: 20060123
  Receipt Date: 20060113
  Transmission Date: 20060701
  Serious: Yes (Death)
  Sender: FDA-Public Use
  Company Number: 163-20785-05120125

PATIENT
  Age: 71 Year
  Sex: Male

DRUGS (11)
  1. THALOMID [Suspect]
     Indication: MYELODYSPLASTIC SYNDROME
     Dosage: 100 MG, QHS, ORAL
     Route: 048
     Dates: start: 20050729, end: 20051025
  2. ARANESP [Concomitant]
  3. PREDNISONE [Concomitant]
  4. ZOLOFT [Concomitant]
  5. ZESTRIL [Concomitant]
  6. ATIVAN [Concomitant]
  7. ASPIRIN [Concomitant]
  8. SYNTHROID [Concomitant]
  9. COREG [Concomitant]
  10. AMIODARONE HCL [Concomitant]
  11. CYTOXAN [Concomitant]

REACTIONS (1)
  - CARDIOMYOPATHY [None]
